FAERS Safety Report 7496781-3 (Version None)
Quarter: 2011Q2

REPORT INFORMATION
  Report Type: 
  Country: None (occurrence: None)
  Receive Date: 20110523
  Receipt Date: 20110516
  Transmission Date: 20111010
  Serious: Yes (Other)
  Sender: FDA-Public Use
  Company Number: B0720561A

PATIENT
  Age: 79 Year
  Sex: Female

DRUGS (3)
  1. SYMMETREL [Suspect]
     Route: 048
  2. PAXIL [Suspect]
     Dosage: 10MG PER DAY
     Route: 048
     Dates: start: 20110501
  3. PAXIL [Suspect]
     Dosage: 20MG PER DAY
     Route: 048
     Dates: end: 20110501

REACTIONS (3)
  - DRUG INTERACTION [None]
  - HALLUCINATION, VISUAL [None]
  - DELIRIUM [None]
